FAERS Safety Report 23217197 (Version 2)
Quarter: 2024Q1

REPORT INFORMATION
  Report Type: Spontaneous
  Country: US (occurrence: US)
  Receive Date: 20231122
  Receipt Date: 20240116
  Transmission Date: 20240409
  Serious: No
  Sender: FDA-Public Use
  Company Number: US-PFIZER INC-202300369277

PATIENT
  Age: 17 Year
  Sex: Male

DRUGS (3)
  1. GENOTROPIN [Suspect]
     Active Substance: SOMATROPIN
     Indication: Blood growth hormone
     Dosage: 2 MG, 1X/DAY
  2. HYDROCORTISONE [Concomitant]
     Active Substance: HYDROCORTISONE
     Indication: Stress
     Dosage: 5 MG, 1X/DAY (ONCE IN THE MORNING, HAS BEEN TAKING HIS ENTIRE LIFE)
     Route: 048
  3. LEVOTHYROXINE [Concomitant]
     Active Substance: LEVOTHYROXINE
     Indication: Thyroid disorder
     Dosage: 224 UG, DAILY (ONE TABLET IN THE MORNING, HALF TABLET IN THE AFTERNOON, HALF TABLET IN THE EVENING)
     Route: 048

REACTIONS (3)
  - Drug dose omission by device [Unknown]
  - Incorrect dose administered by device [Unknown]
  - Device mechanical issue [Unknown]

NARRATIVE: CASE EVENT DATE: 20230101
